FAERS Safety Report 12631807 (Version 2)
Quarter: 2016Q3

REPORT INFORMATION
  Report Type: Spontaneous
  Country: US (occurrence: US)
  Receive Date: 20160808
  Receipt Date: 20160808
  Transmission Date: 20161109
  Serious: No
  Sender: FDA-Public Use
  Company Number: US-BEH-2016061112

PATIENT
  Age: 65 Year
  Sex: Female
  Weight: 85 kg

DRUGS (36)
  1. TRACLEER [Concomitant]
     Active Substance: BOSENTAN
  2. PROMETHAZINE [Concomitant]
     Active Substance: PROMETHAZINE\PROMETHAZINE HYDROCHLORIDE
  3. KRILL OIL [Concomitant]
     Active Substance: DIETARY SUPPLEMENT
  4. ZETIA [Concomitant]
     Active Substance: EZETIMIBE
  5. SPECTRAVITE [Concomitant]
  6. DEXILANT [Concomitant]
     Active Substance: DEXLANSOPRAZOLE
  7. POTASSIUM [Concomitant]
     Active Substance: POTASSIUM
  8. CRESTOR [Concomitant]
     Active Substance: ROSUVASTATIN CALCIUM
  9. HIZENTRA [Suspect]
     Active Substance: HUMAN IMMUNOGLOBULIN G
     Indication: IMMUNODEFICIENCY COMMON VARIABLE
     Route: 058
  10. ACETAMINOPHEN. [Concomitant]
     Active Substance: ACETAMINOPHEN
  11. CIPROFLOXACIN. [Concomitant]
     Active Substance: CIPROFLOXACIN
  12. METOPROLOL SUCCINATE. [Concomitant]
     Active Substance: METOPROLOL SUCCINATE
  13. OMEGA 3 [Concomitant]
     Active Substance: OMEGA-3 FATTY ACIDS
  14. PLAVIX [Concomitant]
     Active Substance: CLOPIDOGREL BISULFATE
  15. EPIPEN [Concomitant]
     Active Substance: EPINEPHRINE
  16. OXYBUTYNIN CHLORIDE ER [Concomitant]
     Active Substance: OXYBUTYNIN CHLORIDE
  17. TIZANIDINE. [Concomitant]
     Active Substance: TIZANIDINE
  18. HIZENTRA [Suspect]
     Active Substance: HUMAN IMMUNOGLOBULIN G
     Indication: PULMONARY ARTERIAL HYPERTENSION
     Route: 058
  19. BABY ASPIRIN [Concomitant]
     Active Substance: ASPIRIN
  20. DIPHENHYDRAMINE. [Concomitant]
     Active Substance: DIPHENHYDRAMINE
  21. PREDNISONE. [Concomitant]
     Active Substance: PREDNISONE
  22. ALENDRONATE [Concomitant]
     Active Substance: ALENDRONATE SODIUM
  23. PAROXETINE. [Concomitant]
     Active Substance: PAROXETINE
  24. AZITHROMYCIN ANHYDROUS. [Concomitant]
     Active Substance: AZITHROMYCIN ANHYDROUS
  25. MULTIVITAMINS [Concomitant]
     Active Substance: VITAMINS
  26. SYMBICORT [Concomitant]
     Active Substance: BUDESONIDE\FORMOTEROL FUMARATE DIHYDRATE
  27. LASIX [Concomitant]
     Active Substance: FUROSEMIDE
  28. METFORMIN [Concomitant]
     Active Substance: METFORMIN HYDROCHLORIDE
  29. VITAMIN B-6 [Concomitant]
     Active Substance: PYRIDOXINE
  30. VITAMIN C [Concomitant]
     Active Substance: ASCORBIC ACID
  31. L-M-X [Concomitant]
  32. AZELASTINE [Concomitant]
     Active Substance: AZELASTINE
  33. NASONEX [Concomitant]
     Active Substance: MOMETASONE FUROATE
  34. VITAMIN E [Concomitant]
     Active Substance: .ALPHA.-TOCOPHEROL
  35. VITAMIN D3 [Concomitant]
     Active Substance: CHOLECALCIFEROL
  36. NORVASC [Concomitant]
     Active Substance: AMLODIPINE BESYLATE

REACTIONS (2)
  - Oral infection [Unknown]
  - Infusion site pruritus [Unknown]

NARRATIVE: CASE EVENT DATE: 20160106
